FAERS Safety Report 22367053 (Version 1)
Quarter: 2023Q2

REPORT INFORMATION
  Report Type: Spontaneous
  Country: HU (occurrence: HU)
  Receive Date: 20230525
  Receipt Date: 20230525
  Transmission Date: 20230722
  Serious: Yes (Other)
  Sender: FDA-Public Use
  Company Number: HU-002147023-NVSC2023HU107661

PATIENT
  Age: 52 Year
  Sex: Female

DRUGS (3)
  1. EPIRUBICIN [Suspect]
     Active Substance: EPIRUBICIN
     Indication: Benign breast neoplasm
     Dosage: UNK
     Route: 065
     Dates: start: 2012
  2. CYCLOPHOSPHAMIDE\FLUOROURACIL\METHOTREXATE [Concomitant]
     Active Substance: CYCLOPHOSPHAMIDE\FLUOROURACIL\METHOTREXATE
     Indication: Benign breast neoplasm
     Dosage: UNK
     Route: 065
     Dates: start: 2012
  3. DOCETAXEL;FLUOROURACIL [Concomitant]
     Indication: Benign breast neoplasm
     Dosage: UNK
     Route: 065
     Dates: start: 2012

REACTIONS (4)
  - Breast cancer [Unknown]
  - Metastases to lymph nodes [Unknown]
  - Metastases to skin [Unknown]
  - Metastases to bone [Unknown]

NARRATIVE: CASE EVENT DATE: 20150101
